FAERS Safety Report 9311078 (Version 1)
Quarter: 2013Q2

REPORT INFORMATION
  Report Type: Spontaneous
  Country: US (occurrence: US)
  Receive Date: 20130528
  Receipt Date: 20130528
  Transmission Date: 20140414
  Serious: No
  Sender: FDA-Public Use
  Company Number: US-PFIZER INC-2013160196

PATIENT
  Age: 50 Year
  Sex: Female
  Weight: 86.17 kg

DRUGS (2)
  1. CELEBREX [Suspect]
     Indication: RHEUMATOID ARTHRITIS
     Dosage: 200 MG, 2X/DAY
     Dates: start: 1999
  2. CELEBREX [Suspect]
     Indication: FIBROMYALGIA
     Dosage: 100 MG, 4X/DAY

REACTIONS (3)
  - Haematuria [Unknown]
  - Bladder cyst [Unknown]
  - Pain [Unknown]
